FAERS Safety Report 17660160 (Version 1)
Quarter: 2020Q2

REPORT INFORMATION
  Report Type: Spontaneous
  Country: DK (occurrence: DK)
  Receive Date: 20200413
  Receipt Date: 20200413
  Transmission Date: 20200713
  Serious: Yes (Death, Life-Threatening)
  Sender: FDA-Public Use
  Company Number: DK-TEVA-772180ACC

PATIENT
  Age: 84 Year
  Sex: Male
  Weight: 86 kg

DRUGS (4)
  1. BICALUTAMIDE ^TEVA^ [Suspect]
     Active Substance: BICALUTAMIDE
     Indication: PROSTATE CANCER
     Dosage: 150 MILLIGRAM DAILY;
     Route: 048
     Dates: start: 20161125, end: 20170508
  2. MINDIAB [Concomitant]
     Active Substance: GLIPIZIDE
     Indication: TYPE 2 DIABETES MELLITUS
     Dosage: 5MG
     Route: 048
     Dates: start: 20161121, end: 20170506
  3. METFORMIN [Concomitant]
     Active Substance: METFORMIN HYDROCHLORIDE
     Indication: TYPE 2 DIABETES MELLITUS
     Dosage: 500MG
     Route: 048
     Dates: start: 20161121, end: 20170221
  4. TRESIBA 100 FLEXTOUCH [Concomitant]
     Indication: TYPE 2 DIABETES MELLITUS
     Dosage: DOSE: 10 UNITS DAILY. INCREASED TO 12 UNITS IN FEBRUARY 2017
     Route: 058
     Dates: start: 20170124

REACTIONS (12)
  - Fatigue [Fatal]
  - Dyspnoea [Fatal]
  - General physical health deterioration [Fatal]
  - Hypoglycaemia [Fatal]
  - Acute hepatic failure [Fatal]
  - Lethargy [Fatal]
  - Limb discomfort [Fatal]
  - Yellow skin [Fatal]
  - Serum ferritin increased [Fatal]
  - Ascites [Fatal]
  - Alanine aminotransferase increased [Fatal]
  - Dizziness [Fatal]

NARRATIVE: CASE EVENT DATE: 201505
